FAERS Safety Report 6244061-6 (Version None)
Quarter: 2009Q2

REPORT INFORMATION
  Report Type: 
  Country: None (occurrence: None)
  Receive Date: 20090623
  Receipt Date: 20090623
  Transmission Date: 20091009
  Serious: Yes (Life-Threatening)
  Sender: FDA-Public Use
  Company Number: None

PATIENT
  Sex: Female
  Weight: 54.8852 kg

DRUGS (2)
  1. ROXANOL 20 MG / ML SKILLED CARE PHARMACY [Suspect]
     Indication: PAIN MANAGEMENT
     Dosage: GIVEN IN ERROR (3 DOSES)  1.25 CC
     Dates: start: 20090617, end: 20090617
  2. ROXANOL 20 MG / 5ML SKILLED CARE PHARMACY [Suspect]
     Dosage: 1.25 CC

REACTIONS (2)
  - INCORRECT DRUG DOSAGE FORM ADMINISTERED [None]
  - MEDICATION ERROR [None]
